FAERS Safety Report 24258792 (Version 1)
Quarter: 2024Q3

REPORT INFORMATION
  Report Type: Spontaneous
  Country: US (occurrence: US)
  Receive Date: 20240828
  Receipt Date: 20240828
  Transmission Date: 20241016
  Serious: Yes (Other)
  Sender: ABBVIE
  Company Number: US-ABBVIE-5891535

PATIENT
  Sex: Female
  Weight: 56.7 kg

DRUGS (6)
  1. LEXAPRO [Suspect]
     Active Substance: ESCITALOPRAM OXALATE
     Indication: Adjustment disorder with depressed mood
     Route: 048
     Dates: start: 2021
  2. LEXAPRO [Suspect]
     Active Substance: ESCITALOPRAM OXALATE
     Indication: Adjustment disorder with depressed mood
     Dosage: 5MG ONCE A DAY ORAL FOR THOSE TWO WEEKS
     Route: 048
     Dates: start: 20240618, end: 20240702
  3. BUPROPION [Suspect]
     Active Substance: BUPROPION
     Indication: Depression
     Dosage: ONE PILL OF 400MG, EXTENDED RELEASE
     Route: 048
     Dates: start: 2020
  4. BUPROPION [Suspect]
     Active Substance: BUPROPION
     Indication: Depression
     Dosage: AT LEAST 2 HOURS APART
     Route: 048
  5. PRISTIQ EXTENDED-RELEASE [Suspect]
     Active Substance: DESVENLAFAXINE SUCCINATE
     Indication: Adjustment disorder with depressed mood
     Dosage: EXTENDED RELEASE TABLET
     Route: 048
     Dates: start: 20240618
  6. ADVIL [Concomitant]
     Active Substance: IBUPROFEN\IBUPROFEN SODIUM
     Indication: Product used for unknown indication

REACTIONS (5)
  - Crohn^s disease [Unknown]
  - Drug ineffective [Unknown]
  - Therapeutic product effect incomplete [Unknown]
  - Dyspepsia [Not Recovered/Not Resolved]
  - Product residue present [Not Recovered/Not Resolved]

NARRATIVE: CASE EVENT DATE: 20240101
